FAERS Safety Report 17063121 (Version 1)
Quarter: 2019Q4

REPORT INFORMATION
  Report Type: Spontaneous
  Country: CN (occurrence: CN)
  Receive Date: 20191122
  Receipt Date: 20191122
  Transmission Date: 20200122
  Serious: Yes (Other)
  Sender: FDA-Public Use
  Company Number: CN-ROCHE-2472534

PATIENT
  Age: 65 Year
  Sex: Male

DRUGS (3)
  1. ZELBORAF [Suspect]
     Active Substance: VEMURAFENIB
     Indication: MALIGNANT MELANOMA
     Dosage: DF=TABLETS; 8 TABLETS PER DAY
     Route: 048
     Dates: start: 201909
  2. ZELBORAF [Suspect]
     Active Substance: VEMURAFENIB
     Dosage: DF=TABLETS; 6 TABLETS PER DAY
     Route: 048
     Dates: start: 2019
  3. THYMUS [Concomitant]
     Active Substance: HUMAN THYMUS\THYMUS
     Dosage: THYMUS HORMONE FOR ENHANCING IMMUNITY
     Route: 065

REACTIONS (3)
  - Rash [Unknown]
  - Papillary thyroid cancer [Unknown]
  - Hypertrophy [Unknown]

NARRATIVE: CASE EVENT DATE: 2019
